FAERS Safety Report 14018245 (Version 1)
Quarter: 2017Q3

REPORT INFORMATION
  Report Type: Spontaneous
  Country: US (occurrence: US)
  Receive Date: 20170927
  Receipt Date: 20170927
  Transmission Date: 20171128
  Serious: Yes (Other)
  Sender: FDA-Public Use
  Company Number: None

PATIENT
  Age: 63 Year
  Sex: Female
  Weight: 62 kg

DRUGS (1)
  1. IRINOTECAN [Suspect]
     Active Substance: IRINOTECAN
     Indication: PANCREATIC CARCINOMA
     Dosage: 180 MG/M2 SQ. METER INTRAVENOUS DRIP
     Route: 041

REACTIONS (7)
  - Blepharospasm [None]
  - Nystagmus [None]
  - Abdominal pain [None]
  - Tongue disorder [None]
  - Nausea [None]
  - Dysarthria [None]
  - Infusion related reaction [None]

NARRATIVE: CASE EVENT DATE: 20170814
